FAERS Safety Report 21050338 (Version 1)
Quarter: 2022Q3

REPORT INFORMATION
  Report Type: Spontaneous
  Country: MY (occurrence: None)
  Receive Date: 20220707
  Receipt Date: 20220707
  Transmission Date: 20221026
  Serious: Yes (Other)
  Sender: FDA-Public Use
  Company Number: 2022A243989

PATIENT
  Age: 65 Year
  Sex: Male

DRUGS (1)
  1. KOMBIGLYZE XR [Suspect]
     Active Substance: METFORMIN HYDROCHLORIDE\SAXAGLIPTIN HYDROCHLORIDE
     Indication: Diabetes mellitus
     Dosage: 2.5/1000MG
     Route: 048

REACTIONS (2)
  - Drug eruption [Recovering/Resolving]
  - Blister [Recovering/Resolving]
